FAERS Safety Report 24376582 (Version 3)
Quarter: 2025Q3

REPORT INFORMATION
  Report Type: Spontaneous
  Country: US (occurrence: US)
  Receive Date: 20240930
  Receipt Date: 20250713
  Transmission Date: 20251020
  Serious: Yes (Hospitalization)
  Sender: SANOFI AVENTIS
  Company Number: US-SA-2024SA279915

PATIENT
  Sex: Male

DRUGS (4)
  1. DUPIXENT [Suspect]
     Active Substance: DUPILUMAB
     Indication: Dermatitis atopic
     Route: 058
     Dates: start: 20240831, end: 20240831
  2. DUPIXENT [Suspect]
     Active Substance: DUPILUMAB
     Dosage: 300 MG, QOW
     Route: 058
     Dates: start: 20240914, end: 20241227
  3. DUPIXENT [Suspect]
     Active Substance: DUPILUMAB
     Dosage: 300MG, QOW
     Route: 058
     Dates: start: 20240928, end: 2025
  4. CYCLOSPORINE [Concomitant]
     Active Substance: CYCLOSPORINE

REACTIONS (11)
  - Localised infection [Recovered/Resolved]
  - Dermatitis atopic [Unknown]
  - Rash [Recovering/Resolving]
  - Pruritus [Recovering/Resolving]
  - Skin haemorrhage [Recovering/Resolving]
  - Dry skin [Recovering/Resolving]
  - Peripheral swelling [Recovering/Resolving]
  - Skin fissures [Recovering/Resolving]
  - Skin exfoliation [Recovering/Resolving]
  - Pain of skin [Recovering/Resolving]
  - Drug ineffective [Unknown]

NARRATIVE: CASE EVENT DATE: 20240101
